FAERS Safety Report 13089400 (Version 1)
Quarter: 2017Q1

REPORT INFORMATION
  Report Type: Spontaneous
  Country: US (occurrence: US)
  Receive Date: 20170105
  Receipt Date: 20170105
  Transmission Date: 20170428
  Serious: No
  Sender: FDA-Public Use
  Company Number: US-BAYER-2017-002075

PATIENT
  Age: 47 Year
  Sex: Male
  Weight: 98.88 kg

DRUGS (9)
  1. EXCEDRIN [CAFFEINE,PARACETAMOL] [Concomitant]
     Indication: HEADACHE
     Dosage: UNK UNK, PRN
  2. ALEVE [Suspect]
     Active Substance: NAPROXEN SODIUM
     Indication: CARPAL TUNNEL SYNDROME
     Dosage: UNK, BID
     Route: 048
  3. IBUPROFEN. [Concomitant]
     Active Substance: IBUPROFEN
     Indication: CARPAL TUNNEL SYNDROME
     Dosage: 200 MG, EVERY 4-6 HOURS AS NEEDED
  4. CARAFATE [Concomitant]
     Active Substance: SUCRALFATE
     Indication: HAEMORRHAGE
     Dosage: 1 G, QID, USUALLY TAKES TWICE A DAY
     Route: 048
     Dates: start: 20160919
  5. NORCO [Concomitant]
     Active Substance: ACETAMINOPHEN\HYDROCODONE BITARTRATE
     Indication: CARPAL TUNNEL SYNDROME
     Dosage: UNK UNK, PRN
  6. VITAMIN B12 [Concomitant]
     Active Substance: CYANOCOBALAMIN
     Dosage: 500 ?G, QD
  7. PROTONIX [Concomitant]
     Active Substance: PANTOPRAZOLE SODIUM
     Indication: HAEMORRHAGE
     Dosage: 40 MG, BID, PRN
     Route: 048
     Dates: start: 20160919
  8. LISINOPRIL. [Concomitant]
     Active Substance: LISINOPRIL
     Indication: HYPERTENSION
     Dosage: 10 MG, QD
  9. CLONIDINE. [Concomitant]
     Active Substance: CLONIDINE
     Indication: HYPERTENSION
     Dosage: 0.1 MG, TID

REACTIONS (3)
  - Drug screen positive [Unknown]
  - Product use issue [None]
  - Product use issue [Unknown]
